FAERS Safety Report 4646184-1 (Version None)
Quarter: 2005Q2

REPORT INFORMATION
  Report Type: 
  Country: None (occurrence: None)
  Receive Date: 20050422
  Receipt Date: 20050422
  Transmission Date: 20051028
  Serious: Yes (Hospitalization)
  Sender: FDA-Public Use
  Company Number: None

PATIENT
  Age: 92 Year
  Sex: Male
  Weight: 79.4 kg

DRUGS (10)
  1. CYMBALTA [Suspect]
     Indication: NEUROPATHY PERIPHERAL
     Dosage: 60 MG   DAILY    ORAL
     Route: 048
     Dates: start: 20050406, end: 20050413
  2. COUMADIN [Concomitant]
  3. DIGOXIN [Concomitant]
  4. DILTIAZEM [Concomitant]
  5. CORTISPORIN [Concomitant]
  6. ZEPHREX [Concomitant]
  7. GLUCOSAMINE AND CHONDROTIN SULFATE [Concomitant]
  8. VITAMIN E [Concomitant]
  9. MINERAL OIL [Concomitant]
  10. TITRALAC [Concomitant]

REACTIONS (4)
  - BLOOD PRESSURE FLUCTUATION [None]
  - BLOOD PRESSURE ORTHOSTATIC ABNORMAL [None]
  - HYPONATRAEMIA [None]
  - HYPOVOLAEMIA [None]
